FAERS Safety Report 17191915 (Version 3)
Quarter: 2020Q1

REPORT INFORMATION
  Report Type: Spontaneous
  Country: JP (occurrence: JP)
  Receive Date: 20191223
  Receipt Date: 20200129
  Transmission Date: 20200409
  Serious: Yes (Life-Threatening, Hospitalization)
  Sender: FDA-Public Use
  Company Number: JP-PFIZER INC-2019548531

PATIENT
  Age: 12 Year
  Sex: Male
  Weight: 31 kg

DRUGS (3)
  1. GENOTROPIN [Suspect]
     Active Substance: SOMATROPIN
     Indication: GROWTH HORMONE DEFICIENCY
     Dosage: 5.2 MG (0.6MG 2X/ WEEK AND 0.8MG 5X/ WEEK), WEEKLY
     Route: 058
     Dates: start: 20160615, end: 20191130
  2. ENARMON [TESTOSTERONE ENANTHATE] [Suspect]
     Active Substance: TESTOSTERONE ENANTHATE
     Indication: SECONDARY HYPOGONADISM
     Dosage: 25 MG, ONCE A MONTH
     Route: 030
     Dates: start: 20190403, end: 20191106
  3. MINIRINMELT [Suspect]
     Active Substance: DESMOPRESSIN ACETATE
     Indication: DIABETES INSIPIDUS
     Dosage: 120 UG, 2X/DAY
     Route: 060
     Dates: start: 20140716

REACTIONS (2)
  - Acute lymphocytic leukaemia [Not Recovered/Not Resolved]
  - Platelet count decreased [Not Recovered/Not Resolved]

NARRATIVE: CASE EVENT DATE: 20191201
